FAERS Safety Report 4432084-9 (Version None)
Quarter: 2004Q3

REPORT INFORMATION
  Report Type: 
  Country: None (occurrence: None)
  Receive Date: 20040819
  Receipt Date: 20040806
  Transmission Date: 20050211
  Serious: Yes (Death)
  Sender: FDA-Public Use
  Company Number: ST-2004-008035

PATIENT
  Age: 60 Year
  Sex: Male

DRUGS (2)
  1. OLMETEC [Suspect]
     Indication: HYPERTENSION
     Dosage: 20 MG QD PO
     Route: 048
     Dates: start: 20040520, end: 20040801
  2. NORVASC [Concomitant]

REACTIONS (1)
  - SUDDEN DEATH [None]
